FAERS Safety Report 15813014 (Version 1)
Quarter: 2018Q4

REPORT INFORMATION
  Report Type: Spontaneous
  Country: US (occurrence: US)
  Receive Date: 20181223
  Receipt Date: 20181223
  Transmission Date: 20190205
  Serious: Yes (Disabling, Other)
  Sender: FDA-Public Use
  Company Number: None

PATIENT
  Age: 37 Year
  Sex: Female

DRUGS (27)
  1. POTASSIUM [Concomitant]
     Active Substance: POTASSIUM
  2. SUPER B COMPLEX W/ VITAMIN C [Concomitant]
  3. PANTOPRAZOLE [Concomitant]
     Active Substance: PANTOPRAZOLE
  4. NAPROXEN SODIUM. [Concomitant]
     Active Substance: NAPROXEN SODIUM
  5. POLYSORBATE 60 [Suspect]
     Active Substance: POLYSORBATE
     Indication: MANUFACTURING MATERIALS ISSUE
  6. GABAPENTIN. [Concomitant]
     Active Substance: GABAPENTIN
  7. METROCLOPRAMIDE [Concomitant]
  8. HYDROXYZINE [Concomitant]
     Active Substance: HYDROXYZINE HYDROCHLORIDE
  9. CALCIUM [Concomitant]
     Active Substance: CALCIUM
  10. CETIRIZINE [Concomitant]
     Active Substance: CETIRIZINE HYDROCHLORIDE
  11. SENNA LAXATIVE [Concomitant]
     Active Substance: SENNOSIDES
  12. POLYETHELENE GLYCOL [Concomitant]
     Active Substance: POLYETHYLENE GLYCOL 3350
  13. VITRION-C [Concomitant]
  14. CLOBETASOL [Concomitant]
     Active Substance: CLOBETASOL
  15. TRIAMCIONOLONE ACETONIDE [Concomitant]
  16. MELATONIN [Concomitant]
     Active Substance: MELATONIN
  17. FLUDROCORTISONE [Concomitant]
     Active Substance: FLUDROCORTISONE
  18. NUVARING [Concomitant]
     Active Substance: ETHINYL ESTRADIOL\ETONOGESTREL
  19. POLYSORBATE 80. [Suspect]
     Active Substance: POLYSORBATE 80
     Indication: MANUFACTURING MATERIALS ISSUE
  20. FAMODIDINE [Concomitant]
  21. FLONASE [Concomitant]
     Active Substance: FLUTICASONE PROPIONATE
  22. FLOVENT [Concomitant]
     Active Substance: FLUTICASONE PROPIONATE
  23. DIPHENHYDRAMINE. [Concomitant]
     Active Substance: DIPHENHYDRAMINE
  24. CARVEDILOL. [Suspect]
     Active Substance: CARVEDILOL
  25. DOCUSATE SODIUM. [Concomitant]
     Active Substance: DOCUSATE SODIUM
  26. CLINDAMYCIN. [Concomitant]
     Active Substance: CLINDAMYCIN
  27. VITAMINE D [Concomitant]
     Active Substance: CHOLECALCIFEROL

REACTIONS (23)
  - Dry eye [None]
  - Heart rate increased [None]
  - Pain [None]
  - Abdominal discomfort [None]
  - Mast cell activation syndrome [None]
  - Tinnitus [None]
  - Regurgitation [None]
  - Fall [None]
  - Drug ineffective [None]
  - Product use complaint [None]
  - Pulse abnormal [None]
  - Fatigue [None]
  - Burning mouth syndrome [None]
  - Anxiety [None]
  - Feeling hot [None]
  - Product formulation issue [None]
  - Headache [None]
  - Haemorrhage [None]
  - Hypersensitivity [None]
  - Erythema [None]
  - Eye irritation [None]
  - Skin burning sensation [None]
  - Foot fracture [None]

NARRATIVE: CASE EVENT DATE: 20181222
